FAERS Safety Report 9880447 (Version 1)
Quarter: 2014Q1

REPORT INFORMATION
  Report Type: Spontaneous
  Country: PH (occurrence: PH)
  Receive Date: 20140207
  Receipt Date: 20140207
  Transmission Date: 20141002
  Serious: Yes (Death, Other)
  Sender: FDA-Public Use
  Company Number: PH-009507513-1402PHL001648

PATIENT
  Age: 75 Year
  Sex: Male

DRUGS (1)
  1. COZAAR [Suspect]
     Dosage: 50 MG, QD
     Route: 048
     Dates: start: 2011

REACTIONS (1)
  - Myocardial infarction [Fatal]
